FAERS Safety Report 8337336-8 (Version None)
Quarter: 2012Q2

REPORT INFORMATION
  Report Type: 
  Country: None (occurrence: None)
  Receive Date: 20120504
  Receipt Date: 20120426
  Transmission Date: 20120825
  Serious: Yes (Hospitalization, Other)
  Sender: FDA-Public Use
  Company Number: JP-VERTEX PHARMACEUTICALS INC.-AE-2012-003623

PATIENT
  Age: 62 Year
  Sex: Male

DRUGS (12)
  1. TELAVIC (TELAPREVIR) [Suspect]
     Indication: HEPATITIS C
     Route: 048
     Dates: start: 20120126, end: 20120307
  2. REBETOL [Concomitant]
     Route: 048
     Dates: start: 20120301, end: 20120307
  3. REBETOL [Concomitant]
     Route: 048
     Dates: start: 20120419
  4. REBETOL [Concomitant]
     Route: 048
     Dates: start: 20120324, end: 20120330
  5. REBETOL [Concomitant]
     Route: 048
     Dates: start: 20120331, end: 20120406
  6. TELAVIC (TELAPREVIR) [Suspect]
     Route: 048
     Dates: start: 20120308, end: 20120321
  7. PEG-INTRON [Concomitant]
     Route: 058
     Dates: start: 20120331
  8. REBETOL [Concomitant]
     Indication: HEPATITIS C
     Route: 048
     Dates: start: 20120126, end: 20120229
  9. TELAVIC (TELAPREVIR) [Suspect]
     Route: 048
     Dates: start: 20120324, end: 20120406
  10. PEG-INTRON [Concomitant]
     Indication: HEPATITIS C
     Route: 058
     Dates: start: 20120126
  11. REBETOL [Concomitant]
     Route: 048
     Dates: start: 20120308
  12. REBETOL [Concomitant]
     Route: 048
     Dates: start: 20120315, end: 20120322

REACTIONS (2)
  - RENAL IMPAIRMENT [None]
  - ANAEMIA [None]
